FAERS Safety Report 9615650 (Version 1)
Quarter: 2013Q4

REPORT INFORMATION
  Report Type: Spontaneous
  Country: US (occurrence: US)
  Receive Date: 20131011
  Receipt Date: 20131011
  Transmission Date: 20140711
  Serious: No
  Sender: FDA-Public Use
  Company Number: US-PURDUE-USA-2013-0099482

PATIENT
  Sex: Female

DRUGS (2)
  1. BUTRANS [Suspect]
     Indication: PRODUCT USED FOR UNKNOWN INDICATION
     Dosage: 20 MCG/HR, 1/WEEK
     Route: 062
  2. BUTRANS [Suspect]
     Dosage: 20 MCG/HR [TWO 10MCG PATCHES AT ONCE], WEEKLY
     Route: 062

REACTIONS (2)
  - Extra dose administered [Not Recovered/Not Resolved]
  - Product adhesion issue [Recovered/Resolved]
